FAERS Safety Report 5154383-8 (Version None)
Quarter: 2006Q4

REPORT INFORMATION
  Report Type: 
  Country: None (occurrence: None)
  Receive Date: 20061114
  Receipt Date: 20061031
  Transmission Date: 20070319
  Serious: Yes (Other)
  Sender: FDA-Public Use
  Company Number: 2006133599

PATIENT
  Age: 78 Year
  Sex: Female
  Weight: 77 kg

DRUGS (6)
  1. AMLODIPINE [Suspect]
     Dosage: 10 MG (10 MG, QD), ORAL
     Route: 048
     Dates: start: 20060911, end: 20060927
  2. ASPIRIN [Concomitant]
  3. BENDROFLUMETHIAZIDE (BENDROFLUMETHIAZIDE) [Concomitant]
  4. CO-CODAMOL (CODEINE PHOSPHATE, PARACETAMOL) [Concomitant]
  5. LEVETIRACETAM [Concomitant]
  6. PHENYTOIN SODIUM [Concomitant]

REACTIONS (2)
  - BLOOD PRESSURE INCREASED [None]
  - EPILEPSY [None]
